FAERS Safety Report 11103559 (Version 1)
Quarter: 2015Q2

REPORT INFORMATION
  Report Type: Report from Study
  Country: ES (occurrence: ES)
  Receive Date: 20150511
  Receipt Date: 20150511
  Transmission Date: 20150821
  Serious: Yes (Death, Life-Threatening, Hospitalization, Other)
  Sender: FDA-Public Use
  Company Number: ES-SA-2015SA061134

PATIENT
  Age: 57 Year
  Sex: Male
  Weight: 65 kg

DRUGS (33)
  1. SPIRONOLACTONE. [Concomitant]
     Active Substance: SPIRONOLACTONE
     Dosage: BREAKFAST
     Route: 048
     Dates: start: 20150430
  2. IDARUBICIN [Suspect]
     Active Substance: IDARUBICIN
     Indication: ACUTE MYELOID LEUKAEMIA
     Route: 042
     Dates: start: 20150409
  3. VITAMIN K [Concomitant]
     Active Substance: PHYTONADIONE
     Dates: start: 20150427, end: 20150427
  4. CYANOCOBALAMIN. [Concomitant]
     Active Substance: CYANOCOBALAMIN
     Dosage: 1 MG/2ML, EVERY 72 HOURS
     Route: 058
     Dates: start: 20150410
  5. ALBUMIN [Concomitant]
     Active Substance: ALBUMIN (HUMAN)
     Dosage: 16 H
     Route: 041
     Dates: start: 20150422
  6. ALBUMIN [Concomitant]
     Active Substance: ALBUMIN (HUMAN)
     Dosage: BREAKFAST
     Route: 041
     Dates: start: 20150430, end: 20150430
  7. SPIRONOLACTONE. [Concomitant]
     Active Substance: SPIRONOLACTONE
     Route: 048
     Dates: start: 20150504
  8. ACYCLOVIR. [Concomitant]
     Active Substance: ACYCLOVIR
     Dosage: 250 MG/10 ML.5 MG/KG.HEM, EVERY 8 H. FROM 24-APR-2015, 15 H
     Route: 041
     Dates: start: 20150424
  9. TRIMETHOPRIM/SULFAMETHOXAZOLE [Concomitant]
     Dosage: 400 MG/80 MG (FREE DOSAGE: 2U AT 9 H. 2U AT 21 H)
     Dates: start: 20150427
  10. MORPHINE [Concomitant]
     Active Substance: MORPHINE
     Dosage: MORPHINE INFUSION PUMP, EVERY 48 HOURS. FROM 21-APR-2015, 14 H
     Route: 041
     Dates: start: 20150421
  11. PLERIXAFOR [Suspect]
     Active Substance: PLERIXAFOR
     Indication: ACUTE MYELOID LEUKAEMIA
     Route: 042
     Dates: start: 20150409
  12. LINEZOLID. [Concomitant]
     Active Substance: LINEZOLID
     Dosage: 600 MG/300 ML BAG. 600 MG. HEM EVERY 12 H (12-24 H). FROM 21-APR-2015, 14 H AND 03-MAY-2015, 19 H
     Route: 041
     Dates: start: 20150421, end: 20150503
  13. CASPOFUNGIN [Concomitant]
     Active Substance: CASPOFUNGIN
     Route: 041
     Dates: start: 20150429
  14. NYSTATIN. [Concomitant]
     Active Substance: NYSTATIN
     Dosage: SUSPENSION 60 ML. 5 ML. EVERY 6 H
     Route: 048
     Dates: start: 20150427
  15. FLUDARABINE PHOSPHATE. [Suspect]
     Active Substance: FLUDARABINE PHOSPHATE
     Indication: ACUTE MYELOID LEUKAEMIA
     Route: 042
     Dates: start: 20150409
  16. G-CSF [Suspect]
     Active Substance: GRANULOCYTE COLONY-STIMULATING FACTOR NOS
     Indication: ACUTE MYELOID LEUKAEMIA
     Route: 058
     Dates: start: 20150409
  17. PANTOPRAZOLE [Concomitant]
     Active Substance: PANTOPRAZOLE SODIUM
     Route: 041
     Dates: start: 20150409, end: 20150424
  18. CYANOCOBALAMIN. [Concomitant]
     Active Substance: CYANOCOBALAMIN
     Dosage: EVERY MONTH
     Dates: start: 20150421, end: 20150421
  19. TAZOBACTAM/PIPERACILLIN [Concomitant]
     Dosage: 4G/0.5 G
     Route: 041
     Dates: start: 20150413, end: 20150424
  20. ALBUMIN [Concomitant]
     Active Substance: ALBUMIN (HUMAN)
     Dosage: FREQUENCY: BREAKFAT-AFTERNOON
     Route: 041
     Dates: start: 20150424
  21. CASPOFUNGIN [Concomitant]
     Active Substance: CASPOFUNGIN
     Dosage: 50MG/10 ML. 50 MG.HEM. EVERY 24 H (18 H).
     Route: 041
     Dates: start: 20150425
  22. AMIKACIN [Concomitant]
     Active Substance: AMIKACIN
     Dosage: 1000 MG/100 ML. 15 MG/KG EVERY 24 H, FROM 03-MAY-2015, 19 H
     Route: 041
     Dates: start: 20150503
  23. CYTARABINE. [Suspect]
     Active Substance: CYTARABINE
     Indication: ACUTE MYELOID LEUKAEMIA
     Route: 042
     Dates: start: 20150409
  24. SPIRONOLACTONE. [Concomitant]
     Active Substance: SPIRONOLACTONE
     Dosage: 15 H
     Route: 048
     Dates: start: 20150423
  25. PARAFFIN, LIQUID [Concomitant]
     Dosage: 7.17G/15 ML. 15 ML .BREAKFAST DINNER
     Route: 048
     Dates: start: 20150423, end: 20150424
  26. MEROPENEM. [Concomitant]
     Active Substance: MEROPENEM
     Dosage: EVERY 8 H. FROM 24-APR-2015, 15 H
     Route: 041
     Dates: start: 20150424
  27. FOLIC ACID. [Concomitant]
     Active Substance: FOLIC ACID
     Dosage: FREE DOSAGE: 10 MG AT 9 H) FROM 27-APR2015, 15 H
     Route: 048
     Dates: start: 20150427
  28. SALINE [Concomitant]
     Active Substance: SODIUM CHLORIDE
     Dosage: PHYSIOLOGIC SALINE +GF%-4000 ML
     Route: 042
     Dates: start: 20150409
  29. VITAMIN K [Concomitant]
     Active Substance: PHYTONADIONE
     Dosage: 10 MG/1ML (FREE DOSAGE: 10 MG AT 8 H).
     Dates: start: 20150408
  30. MICAFUNGIN [Concomitant]
     Active Substance: MICAFUNGIN
     Dosage: 50 MG.HEM.EVERY 24 H (18 H).FROM 14-APR-2015 TO 24-APR-2015, 15 H
     Route: 041
     Dates: start: 20150414, end: 20150424
  31. SALINE [Concomitant]
     Active Substance: SODIUM CHLORIDE
     Dosage: PHYSIOLOGIC SALINE +GF%-1000 ML
     Route: 042
     Dates: start: 20150425
  32. VITAMIN K [Concomitant]
     Active Substance: PHYTONADIONE
     Dosage: BREAKFAST DINNER
     Dates: start: 20150414
  33. FOLIC ACID. [Concomitant]
     Active Substance: FOLIC ACID
     Dosage: DINNER 14 H. O0N 24-APR-2015, 15 H
     Route: 048
     Dates: start: 20150410, end: 20150424

REACTIONS (1)
  - Septic shock [Fatal]

NARRATIVE: CASE EVENT DATE: 20150504
